FAERS Safety Report 6526046-5 (Version None)
Quarter: 2010Q1

REPORT INFORMATION
  Report Type: 
  Country: None (occurrence: None)
  Receive Date: 20100104
  Receipt Date: 20060609
  Transmission Date: 20100710
  Serious: Yes (Other)
  Sender: FDA-Public Use
  Company Number: US-BAXTER-2008BH012621

PATIENT
  Age: 49 Year
  Sex: Female

DRUGS (17)
  1. GAMMAGARD LIQUID [Suspect]
     Indication: HYPOGAMMAGLOBULINAEMIA
     Route: 042
     Dates: start: 20051101, end: 20060301
  2. GAMMAGARD LIQUID [Suspect]
     Indication: RESPIRATORY TRACT INFECTION
     Route: 042
     Dates: start: 20051101, end: 20060301
  3. PREDNISONE [Concomitant]
     Route: 048
     Dates: start: 20060424
  4. QVAR 40 [Concomitant]
     Route: 055
     Dates: start: 20060411
  5. PRILOSEC [Concomitant]
     Route: 048
     Dates: start: 20060410
  6. SEREVENT [Concomitant]
     Route: 055
     Dates: start: 20060123
  7. SINGULAIR [Concomitant]
     Route: 048
     Dates: start: 20060123
  8. FLONASE [Concomitant]
     Route: 055
     Dates: start: 20060123
  9. GUAIFENEX PSE [Concomitant]
     Route: 048
     Dates: start: 20060123
  10. UNIPHYL [Concomitant]
     Route: 048
     Dates: start: 20060123
  11. PRILOSEC [Concomitant]
     Route: 048
     Dates: start: 20060123
  12. ALBUTEROL SULFATE AUTOHALER [Concomitant]
     Route: 055
     Dates: start: 20051017
  13. PROTONIX [Concomitant]
     Route: 048
     Dates: start: 20051017
  14. XOLAIR [Concomitant]
     Route: 058
     Dates: start: 20050912
  15. THEO-24 [Concomitant]
     Dates: start: 20050912
  16. VENTOLIN NEBULES PF [Concomitant]
     Route: 055
     Dates: start: 20050912
  17. PREVACID [Concomitant]
     Route: 048
     Dates: start: 20050912

REACTIONS (4)
  - ADVERSE DRUG REACTION [None]
  - ADVERSE EVENT [None]
  - HEADACHE [None]
  - NECK PAIN [None]
